FAERS Safety Report 6366375-1 (Version None)
Quarter: 2009Q3

REPORT INFORMATION
  Report Type: 
  Country: None (occurrence: None)
  Receive Date: 20090921
  Receipt Date: 20090917
  Transmission Date: 20100115
  Serious: Yes (Death, Hospitalization)
  Sender: FDA-Public Use
  Company Number: FR-B.I. PHARMACEUTICALS,INC./RIDGEFIELD-2009-FF-00625FF

PATIENT
  Sex: Female

DRUGS (7)
  1. SPIRIVA [Suspect]
     Indication: ASTHMA
     Dosage: 18 MCG
     Route: 055
     Dates: end: 20090512
  2. RAMIPRIL [Suspect]
     Indication: HYPERTENSION
     Dosage: 2.5 MG
     Route: 048
     Dates: start: 20090101, end: 20090512
  3. LASILIX RETARD [Concomitant]
     Indication: HYPERTENSION
     Dosage: 60 MG
     Route: 048
     Dates: end: 20090512
  4. LASILIX RETARD [Concomitant]
     Dosage: 40 MG
     Route: 048
     Dates: start: 20090513
  5. ALDACTONE [Concomitant]
     Indication: CARDIAC FAILURE
     Dosage: 25 MG
     Route: 048
     Dates: end: 20090512
  6. DISCOTRINE [Concomitant]
     Indication: CARDIAC FAILURE
     Dosage: 10 MG
     Route: 062
     Dates: end: 20090512
  7. SYMBICORT [Concomitant]
     Dosage: 200/6 MCG

REACTIONS (2)
  - DEATH [None]
  - PEMPHIGOID [None]
